FAERS Safety Report 4295183-0 (Version None)
Quarter: 2004Q1

REPORT INFORMATION
  Report Type: 
  Country: None (occurrence: None)
  Receive Date: 20040216
  Receipt Date: 20020822
  Transmission Date: 20041129
  Serious: Yes (Hospitalization)
  Sender: FDA-Public Use
  Company Number: PHEH2002US07597

PATIENT
  Age: 59 Year
  Sex: Female
  Weight: 80 kg

DRUGS (4)
  1. STARLIX [Suspect]
     Indication: DIABETES MELLITUS NON-INSULIN-DEPENDENT
     Dosage: TREATMENT INTERRUPTED
     Dates: start: 20020816, end: 20020818
  2. STARLIX [Suspect]
     Dosage: 120 MG
     Dates: start: 20020819, end: 20020819
  3. STARLIX [Suspect]
     Dosage: 120 MG, TID
     Route: 048
     Dates: start: 20011129, end: 20020816
  4. METFORMIN HCL [Suspect]
     Indication: DIABETES MELLITUS NON-INSULIN-DEPENDENT
     Dosage: 1000 MG, BID
     Dates: start: 20011129, end: 20020719

REACTIONS (4)
  - RASH [None]
  - RASH GENERALISED [None]
  - SEPSIS [None]
  - WHITE BLOOD CELL COUNT INCREASED [None]
